FAERS Safety Report 14276574 (Version 1)
Quarter: 2017Q4

REPORT INFORMATION
  Report Type: Spontaneous
  Country: US (occurrence: US)
  Receive Date: 20171212
  Receipt Date: 20171212
  Transmission Date: 20180321
  Serious: No
  Sender: FDA-Public Use
  Company Number: US-APOTEX-2017AP021002

PATIENT

DRUGS (1)
  1. DUTASTERIDE CAPSULES [Suspect]
     Active Substance: DUTASTERIDE
     Indication: BENIGN PROSTATIC HYPERPLASIA
     Dosage: UNK
     Route: 065
     Dates: start: 201611

REACTIONS (4)
  - Product physical issue [Unknown]
  - Product substitution issue [Unknown]
  - Condition aggravated [Recovered/Resolved]
  - Drug ineffective [Unknown]
